FAERS Safety Report 25277524 (Version 3)
Quarter: 2025Q2

REPORT INFORMATION
  Report Type: Spontaneous
  Country: AU (occurrence: AU)
  Receive Date: 20250507
  Receipt Date: 20250625
  Transmission Date: 20250716
  Serious: Yes (Hospitalization)
  Sender: ROCHE
  Company Number: AU-ROCHE-10000231537

PATIENT
  Age: 43 Year
  Sex: Female

DRUGS (14)
  1. MYCOPHENOLATE MOFETIL [Suspect]
     Active Substance: MYCOPHENOLATE MOFETIL
     Indication: Pemphigoid
     Route: 048
  2. MYCOPHENOLATE MOFETIL [Suspect]
     Active Substance: MYCOPHENOLATE MOFETIL
     Route: 048
  3. MYCOPHENOLATE MOFETIL [Suspect]
     Active Substance: MYCOPHENOLATE MOFETIL
     Route: 048
  4. RITUXIMAB [Suspect]
     Active Substance: RITUXIMAB
     Indication: Pemphigoid
     Route: 042
  5. LEVOTHYROXINE [Concomitant]
     Active Substance: LEVOTHYROXINE
     Indication: Hypothyroidism
  6. CARBAMAZEPINE [Concomitant]
     Active Substance: CARBAMAZEPINE
     Indication: Epilepsy
  7. FAMCICLOVIR [Concomitant]
     Active Substance: FAMCICLOVIR
  8. PREDNISOLONE [Concomitant]
     Active Substance: PREDNISOLONE
  9. DOXYCYCLINE [Concomitant]
     Active Substance: DOXYCYCLINE
  10. OMALIZUMAB [Concomitant]
     Active Substance: OMALIZUMAB
  11. DUPILUMAB [Concomitant]
     Active Substance: DUPILUMAB
  12. SULFAMETHOXAZOLE\TRIMETHOPRIM [Concomitant]
     Active Substance: SULFAMETHOXAZOLE\TRIMETHOPRIM
  13. NIVOLUMAB [Concomitant]
     Active Substance: NIVOLUMAB
  14. CLOBETASOL PROPIONATE [Concomitant]
     Active Substance: CLOBETASOL PROPIONATE
     Route: 061

REACTIONS (5)
  - Cytopenia [Unknown]
  - Bacteraemia [Unknown]
  - Systemic candida [Unknown]
  - Sepsis [Unknown]
  - Off label use [Unknown]
